FAERS Safety Report 15224836 (Version 1)
Quarter: 2018Q3

REPORT INFORMATION
  Report Type: Report from Study
  Country: None (occurrence: US)
  Receive Date: 20180731
  Receipt Date: 20180731
  Transmission Date: 20181010
  Serious: Yes (Other)
  Sender: FDA-Public Use
  Company Number: US-ABBVIE-18K-163-2435226-00

PATIENT
  Age: 56 Year
  Sex: Female

DRUGS (1)
  1. HUMIRA [Suspect]
     Active Substance: ADALIMUMAB
     Indication: RHEUMATOID ARTHRITIS
     Route: 058
     Dates: end: 20180702

REACTIONS (4)
  - Peripheral swelling [Recovering/Resolving]
  - Medical device site haematoma [Recovering/Resolving]
  - Coronary artery occlusion [Not Recovered/Not Resolved]
  - Rash generalised [Recovering/Resolving]

NARRATIVE: CASE EVENT DATE: 2018
